FAERS Safety Report 13584233 (Version 1)
Quarter: 2017Q2

REPORT INFORMATION
  Report Type: Spontaneous
  Country: US (occurrence: US)
  Receive Date: 20170525
  Receipt Date: 20170525
  Transmission Date: 20170830
  Serious: Yes (Hospitalization)
  Sender: FDA-Public Use
  Company Number: None

PATIENT
  Age: 74 Year
  Sex: Female
  Weight: 98 kg

DRUGS (1)
  1. CARBOPLATIN. [Suspect]
     Active Substance: CARBOPLATIN
     Indication: OVARIAN CANCER
     Dosage: ?          OTHER FREQUENCY:ONCE;?
     Dates: start: 20170503, end: 20170503

REACTIONS (8)
  - Hypersensitivity [None]
  - Pruritus [None]
  - Dyspnoea [None]
  - Mental status changes [None]
  - Anxiety [None]
  - Pain [None]
  - Restlessness [None]
  - Rash [None]

NARRATIVE: CASE EVENT DATE: 20170503
